FAERS Safety Report 9762238 (Version 1)
Quarter: 2013Q4

REPORT INFORMATION
  Report Type: Spontaneous
  Country: US (occurrence: US)
  Receive Date: 20131216
  Receipt Date: 20131216
  Transmission Date: 20140711
  Serious: No
  Sender: FDA-Public Use
  Company Number: US-BIOGENIDEC-2013BI105059

PATIENT
  Sex: Male
  Weight: 108 kg

DRUGS (5)
  1. TECFIDERA [Suspect]
     Indication: PRODUCT USED FOR UNKNOWN INDICATION
     Route: 048
  2. PROPANALOL [Concomitant]
  3. LIPITOR [Concomitant]
  4. VALIUM [Concomitant]
  5. AMITRIPTYLINE [Concomitant]

REACTIONS (6)
  - Flatulence [Recovered/Resolved]
  - Mass [Recovered/Resolved]
  - Pruritus [Recovered/Resolved]
  - Burning sensation [Recovered/Resolved]
  - Dyspepsia [Recovered/Resolved]
  - Abdominal discomfort [Recovered/Resolved]
